FAERS Safety Report 25627900 (Version 1)
Quarter: 2025Q3

REPORT INFORMATION
  Report Type: Spontaneous
  Country: US (occurrence: US)
  Receive Date: 20250731
  Receipt Date: 20250731
  Transmission Date: 20251021
  Serious: No
  Sender: BAYER HEALTHCARE PHARMACEUTICALS INC.
  Company Number: US-BAYER-2025A099591

PATIENT

DRUGS (2)
  1. KERENDIA [Suspect]
     Active Substance: FINERENONE
  2. ALDACTONE [Suspect]
     Active Substance: SPIRONOLACTONE

REACTIONS (2)
  - Hypersensitivity [None]
  - Cross sensitivity reaction [None]
